FAERS Safety Report 13535394 (Version 2)
Quarter: 2017Q2

REPORT INFORMATION
  Report Type: Spontaneous
  Country: FR (occurrence: FR)
  Receive Date: 20170511
  Receipt Date: 20170512
  Transmission Date: 20170830
  Serious: Yes (Hospitalization)
  Sender: FDA-Public Use
  Company Number: FR-PFIZER INC-2017200176

PATIENT
  Age: 75 Year
  Sex: Male

DRUGS (14)
  1. UVEDOSE [Concomitant]
     Active Substance: CHOLECALCIFEROL
  2. MOVICOL [Concomitant]
     Active Substance: POLYETHYLENE GLYCOL 3350\POTASSIUM CHLORIDE\SODIUM BICARBONATE\SODIUM CHLORIDE
  3. SOLUPRED /00016201/ [Concomitant]
     Active Substance: PREDNISOLONE
  4. ETOPOSIDE MYLAN [Suspect]
     Active Substance: ETOPOSIDE
     Indication: PROSTATE CANCER
     Dosage: UNK
     Route: 042
     Dates: start: 20161215
  5. OXYCONTIN [Concomitant]
     Active Substance: OXYCODONE HYDROCHLORIDE
  6. PARACETAMOL [Concomitant]
     Active Substance: ACETAMINOPHEN
  7. DIFFU K [Concomitant]
     Active Substance: POTASSIUM CHLORIDE
  8. OXYNORMORO [Concomitant]
     Active Substance: OXYCODONE
  9. LERCANIDIPINE HYDROCHLORIDE [Concomitant]
     Active Substance: LERCANIDIPINE HYDROCHLORIDE
  10. CARBOPLATINE HOSPIRA [Suspect]
     Active Substance: CARBOPLATIN
     Indication: PROSTATE CANCER
     Dosage: UNK
     Route: 042
     Dates: start: 20170320
  11. CALCIDOSE /07357001/ [Concomitant]
     Active Substance: CALCIUM CARBONATE
  12. CISPLATINE ACCORD [Suspect]
     Active Substance: CISPLATIN
     Indication: PROSTATE CANCER
     Dosage: UNK
     Route: 042
     Dates: start: 20161215, end: 201703
  13. MOTILIUM [Concomitant]
     Active Substance: DOMPERIDONE
  14. EUPANTOL [Concomitant]
     Active Substance: PANTOPRAZOLE SODIUM

REACTIONS (3)
  - Condition aggravated [Recovering/Resolving]
  - Acute kidney injury [Recovering/Resolving]
  - Hypocalcaemia [Not Recovered/Not Resolved]

NARRATIVE: CASE EVENT DATE: 20170308
